FAERS Safety Report 5429543-9 (Version None)
Quarter: 2007Q3

REPORT INFORMATION
  Report Type: 
  Country: None (occurrence: None)
  Receive Date: 20070824
  Receipt Date: 20070808
  Transmission Date: 20080115
  Serious: Yes (Life-Threatening, Hospitalization)
  Sender: FDA-Public Use
  Company Number: 2007EU001752

PATIENT
  Age: 43 Year
  Sex: Female

DRUGS (9)
  1. PROGRAF [Suspect]
     Indication: LUNG TRANSPLANT
     Dosage: 2.5 MG, BID, ORAL
     Route: 048
     Dates: start: 19980101
  2. CELLCEPT [Suspect]
     Dosage: 500 MG, TID, ORAL
     Route: 048
     Dates: start: 19980101
  3. MEDROL [Suspect]
     Dosage: 8 MG, UID/QD, ORAL
     Route: 048
  4. METHOTREXATE [Suspect]
     Dosage: 20 MG, WEEKLY, ORAL
     Route: 048
     Dates: start: 20070216
  5. FOLIC ACID [Suspect]
     Dosage: 3 DF, UID/QD, ORAL
     Route: 048
     Dates: start: 20070216
  6. ZITHROMAX [Concomitant]
  7. ALFALASTIN (ALPHA-1-ANTITRYPSIN) [Concomitant]
  8. PREVISCAN (FLUINDIONE) [Concomitant]
  9. TORENTAL [Concomitant]

REACTIONS (8)
  - CHILLS [None]
  - DIARRHOEA [None]
  - DYSPNOEA [None]
  - HAEMODYNAMIC INSTABILITY [None]
  - PSEUDOMONAS INFECTION [None]
  - PYREXIA [None]
  - SEPTIC SHOCK [None]
  - VOMITING [None]
